FAERS Safety Report 16895662 (Version 1)
Quarter: 2019Q4

REPORT INFORMATION
  Report Type: Spontaneous
  Country: US (occurrence: US)
  Receive Date: 20190814
  Receipt Date: 20190814
  Transmission Date: 20200122
  Serious: No
  Sender: FDA-Public Use
  Company Number: None

PATIENT
  Age: 56 Year
  Sex: Female
  Weight: 132.45 kg

DRUGS (1)
  1. STELARA [Suspect]
     Active Substance: USTEKINUMAB
     Indication: PSORIATIC ARTHROPATHY
     Dosage: INJECT 90 MG SUBCUTANEOUSLY ON DAY 0 AND DAY 28 AS DIRECTED
     Route: 058
     Dates: start: 201907

REACTIONS (2)
  - Hepatic steatosis [None]
  - Pruritus [None]
